FAERS Safety Report 13859250 (Version 10)
Quarter: 2018Q2

REPORT INFORMATION
  Report Type: Spontaneous
  Country: US (occurrence: US)
  Receive Date: 20170811
  Receipt Date: 20180416
  Transmission Date: 20180711
  Serious: Yes (Other)
  Sender: FDA-Public Use
  Company Number: PHEH2017US025210

PATIENT
  Age: 27 Year
  Sex: Female
  Weight: 63.5 kg

DRUGS (1)
  1. ZOFRAN [Suspect]
     Active Substance: ONDANSETRON HYDROCHLORIDE
     Indication: VOMITING IN PREGNANCY
     Dosage: 4 MG, PRN
     Route: 048
     Dates: start: 20141009, end: 20150303

REACTIONS (22)
  - Maternal exposure during pregnancy [Unknown]
  - Vaginal lesion [Unknown]
  - Facial pain [Unknown]
  - Dyspepsia [Unknown]
  - Anxiety [Unknown]
  - Injury [Unknown]
  - Headache [Unknown]
  - Anhedonia [Unknown]
  - Pyrexia [Unknown]
  - Subchorionic haemorrhage [Unknown]
  - Arthralgia [Unknown]
  - Depression [Unknown]
  - Vaginal haemorrhage [Unknown]
  - Viral infection [Unknown]
  - Insomnia [Unknown]
  - Product use in unapproved indication [Unknown]
  - Premature delivery [Unknown]
  - Uterine contractions during pregnancy [Unknown]
  - Emotional distress [Unknown]
  - Oropharyngeal pain [Unknown]
  - Cough [Unknown]
  - Fatigue [Unknown]

NARRATIVE: CASE EVENT DATE: 20150426
